FAERS Safety Report 25625852 (Version 1)
Quarter: 2025Q3

REPORT INFORMATION
  Report Type: Spontaneous
  Country: US (occurrence: US)
  Receive Date: 20250731
  Receipt Date: 20250731
  Transmission Date: 20251021
  Serious: Yes (Hospitalization)
  Sender: MERCK SHARP & DOHME LLC
  Company Number: US-009507513-2313672

PATIENT
  Sex: Male
  Weight: 157.4 kg

DRUGS (21)
  1. SOTATERCEPT [Suspect]
     Active Substance: SOTATERCEPT
     Dates: end: 2025
  2. SOTATERCEPT [Suspect]
     Active Substance: SOTATERCEPT
  3. SOTATERCEPT [Suspect]
     Active Substance: SOTATERCEPT
  4. SOTATERCEPT [Suspect]
     Active Substance: SOTATERCEPT
  5. ORENITRAM [Suspect]
     Active Substance: TREPROSTINIL
     Indication: Pulmonary arterial hypertension
     Dosage: 8 MG, Q8H
     Route: 048
  6. ORENITRAM [Suspect]
     Active Substance: TREPROSTINIL
     Indication: Pulmonary arterial hypertension
     Route: 048
     Dates: start: 20160930
  7. ORENITRAM [Suspect]
     Active Substance: TREPROSTINIL
     Indication: Pulmonary arterial hypertension
     Route: 048
  8. ALLOPURINOL [Concomitant]
     Active Substance: ALLOPURINOL
  9. LASIX [Concomitant]
     Active Substance: FUROSEMIDE
  10. VELETRI [Concomitant]
     Active Substance: EPOPROSTENOL
  11. BUMETANIDE [Concomitant]
     Active Substance: BUMETANIDE
  12. METOPROLOL TARTRATE [Concomitant]
     Active Substance: METOPROLOL TARTRATE
  13. METOPROLOL SUCCINATE [Concomitant]
     Active Substance: METOPROLOL SUCCINATE
  14. SPIRIVA [Concomitant]
     Active Substance: TIOTROPIUM BROMIDE MONOHYDRATE
  15. SODIUM CHLORIDE [Concomitant]
     Active Substance: SODIUM CHLORIDE
  16. KLOR-CON M20 [Concomitant]
     Active Substance: POTASSIUM CHLORIDE
  17. ELIQUIS [Concomitant]
     Active Substance: APIXABAN
  18. ALBUTEROL SULFATE [Concomitant]
     Active Substance: ALBUTEROL SULFATE
  19. OPSUMIT [Concomitant]
     Active Substance: MACITENTAN
  20. ADEMPAS [Concomitant]
     Active Substance: RIOCIGUAT
  21. OXYGEN [Concomitant]
     Active Substance: OXYGEN

REACTIONS (1)
  - Gastrointestinal haemorrhage [Unknown]
